FAERS Safety Report 19291254 (Version 1)
Quarter: 2021Q2

REPORT INFORMATION
  Report Type: Spontaneous
  Country: US (occurrence: US)
  Receive Date: 20210523
  Receipt Date: 20210523
  Transmission Date: 20210717
  Serious: No
  Sender: FDA-Public Use
  Company Number: US-SA-2021SA167143

PATIENT
  Sex: Male

DRUGS (8)
  1. DUPIXENT [Suspect]
     Active Substance: DUPILUMAB
     Indication: PSORIASIS
     Route: 058
  2. VITAMIN D3 [Concomitant]
     Active Substance: CHOLECALCIFEROL
  3. DUPIXENT [Suspect]
     Active Substance: DUPILUMAB
     Indication: ECZEMA
  4. ASPIRINE [Concomitant]
     Active Substance: ASPIRIN
  5. GLUCOSAMINE + CHONDORITIN [Concomitant]
  6. FISH OIL [Concomitant]
     Active Substance: FISH OIL
  7. FENOFIBRATE. [Concomitant]
     Active Substance: FENOFIBRATE
  8. VITAMIN B12 [Concomitant]
     Active Substance: CYANOCOBALAMIN

REACTIONS (2)
  - Product use in unapproved indication [Unknown]
  - Psoriasis [Unknown]
